FAERS Safety Report 7109860-7 (Version None)
Quarter: 2010Q4

REPORT INFORMATION
  Report Type: 
  Country: None (occurrence: None)
  Receive Date: 20101118
  Receipt Date: 20101108
  Transmission Date: 20110411
  Serious: Yes (Other)
  Sender: FDA-Public Use
  Company Number: DE-JNJFOC-20101102556

PATIENT
  Age: 24 Year
  Sex: Male
  Weight: 89 kg

DRUGS (9)
  1. RISPERDAL [Suspect]
     Indication: ILL-DEFINED DISORDER
     Route: 048
     Dates: start: 20080201, end: 20080701
  2. RISPERDAL CONSTA [Suspect]
     Indication: ILL-DEFINED DISORDER
     Route: 030
     Dates: start: 20080701, end: 20090901
  3. RISPERDAL CONSTA [Suspect]
     Route: 030
     Dates: start: 20080701, end: 20090901
  4. LEPONEX [Suspect]
     Indication: ILL-DEFINED DISORDER
     Route: 048
  5. LEPONEX [Suspect]
     Route: 048
  6. LEPONEX [Suspect]
     Route: 048
  7. LEPONEX [Suspect]
     Route: 048
  8. LEPONEX [Suspect]
     Route: 048
  9. LEPONEX [Suspect]
     Route: 048

REACTIONS (3)
  - GLUCOSE TOLERANCE IMPAIRED [None]
  - HYPERCHOLESTEROLAEMIA [None]
  - WEIGHT INCREASED [None]
